FAERS Safety Report 17975393 (Version 1)
Quarter: 2020Q3

REPORT INFORMATION
  Report Type: Spontaneous
  Country: BR (occurrence: BR)
  Receive Date: 20200702
  Receipt Date: 20200702
  Transmission Date: 20201103
  Serious: Yes (Death, Other)
  Sender: FDA-Public Use
  Company Number: BR-PFIZER INC-2020060058

PATIENT
  Age: 69 Year
  Sex: Female

DRUGS (4)
  1. SUTENT [Suspect]
     Active Substance: SUNITINIB MALATE
     Dosage: 50 MG, CYCLIC (28?DAY CYCLE)
     Dates: start: 20191120
  2. SUTENT [Suspect]
     Active Substance: SUNITINIB MALATE
     Dosage: 12.5 MG, CYCLIC
  3. SUTENT [Suspect]
     Active Substance: SUNITINIB MALATE
     Dosage: UNK, (EVERY OTHER DAY)
  4. SUTENT [Suspect]
     Active Substance: SUNITINIB MALATE
     Dosage: 25 MG, CYCLIC

REACTIONS (9)
  - Diarrhoea [Unknown]
  - Dyspnoea [Unknown]
  - Fall [Unknown]
  - Urinary retention [Unknown]
  - Neoplasm progression [Fatal]
  - Vomiting [Unknown]
  - Aphthous ulcer [Unknown]
  - Pleural effusion [Unknown]
  - Dizziness [Unknown]

NARRATIVE: CASE EVENT DATE: 202005
